FAERS Safety Report 7474619-8 (Version None)
Quarter: 2011Q2

REPORT INFORMATION
  Report Type: 
  Country: None (occurrence: None)
  Receive Date: 20110503
  Receipt Date: 20110420
  Transmission Date: 20111010
  Serious: Yes (Other)
  Sender: FDA-Public Use
  Company Number: GER/ITL/11/0018139

PATIENT
  Age: 47 Year
  Sex: Male

DRUGS (5)
  1. CLOPIDOGREL [Suspect]
     Indication: MYOCARDIAL INFARCTION
     Dosage: 75 MG, 1 IN 1 D, ORAL
     Route: 048
     Dates: start: 20110303, end: 20110415
  2. SIMVASTATIN [Concomitant]
  3. RANIDIL (RANITIDINE HYDROCHLORIDE) [Concomitant]
  4. CONGESCOR (BI9SOPROLOL) [Concomitant]
  5. ACETYLSALICYLIC ACID (ACETYLSALICYLIC ACID) [Concomitant]

REACTIONS (1)
  - THROMBOCYTOSIS [None]
